FAERS Safety Report 17360837 (Version 1)
Quarter: 2020Q1

REPORT INFORMATION
  Report Type: Spontaneous
  Country: US (occurrence: US)
  Receive Date: 20200131
  Receipt Date: 20200131
  Transmission Date: 20200409
  Serious: Yes (Disabling)
  Sender: FDA-Public Use
  Company Number: None

PATIENT
  Age: 44 Year
  Sex: Female
  Weight: 129.15 kg

DRUGS (1)
  1. AIMOVIG [Suspect]
     Active Substance: ERENUMAB-AOOE
     Indication: MIGRAINE
     Dosage: ?          OTHER FREQUENCY:ONCE A MONTH;?
     Route: 030
     Dates: start: 20200108, end: 20200122

REACTIONS (5)
  - Burning sensation [None]
  - Chest pain [None]
  - Paraesthesia [None]
  - Anxiety [None]
  - Diarrhoea [None]

NARRATIVE: CASE EVENT DATE: 20200122
